FAERS Safety Report 13668860 (Version 1)
Quarter: 2017Q2

REPORT INFORMATION
  Report Type: Spontaneous
  Country: US (occurrence: US)
  Receive Date: 20170619
  Receipt Date: 20170619
  Transmission Date: 20170830
  Serious: Yes (Life-Threatening, Hospitalization, Disabling)
  Sender: FDA-Public Use
  Company Number: None

PATIENT
  Age: 60 Year
  Sex: Female
  Weight: 54 kg

DRUGS (4)
  1. URSODIOL. [Concomitant]
     Active Substance: URSODIOL
  2. PROPANOLOL [Concomitant]
     Active Substance: PROPRANOLOL HYDROCHLORIDE
  3. METOPROLOL. [Concomitant]
     Active Substance: METOPROLOL
  4. DIAZEPAM. [Suspect]
     Active Substance: DIAZEPAM
     Indication: SEIZURE
     Route: 048
     Dates: start: 19680101, end: 20170619

REACTIONS (27)
  - Drug withdrawal syndrome [None]
  - Drug ineffective [None]
  - Mental disorder [None]
  - Agitation [None]
  - Headache [None]
  - Illusion [None]
  - Dyspepsia [None]
  - Tinnitus [None]
  - Memory impairment [None]
  - Exercise tolerance decreased [None]
  - Vertigo [None]
  - Hypoaesthesia [None]
  - Neuropathy peripheral [None]
  - Tremor [None]
  - Insomnia [None]
  - Arrhythmia [None]
  - Hypotension [None]
  - Seizure [None]
  - Akathisia [None]
  - Depersonalisation/derealisation disorder [None]
  - Drug tolerance [None]
  - Nightmare [None]
  - Migraine [None]
  - Autonomic nervous system imbalance [None]
  - Neuralgia [None]
  - Petit mal epilepsy [None]
  - Dysphoria [None]

NARRATIVE: CASE EVENT DATE: 19750601
